FAERS Safety Report 7166917-2 (Version None)
Quarter: 2010Q4

REPORT INFORMATION
  Report Type: 
  Country: None (occurrence: None)
  Receive Date: 20101216
  Receipt Date: 20101207
  Transmission Date: 20110411
  Serious: Yes (Other)
  Sender: FDA-Public Use
  Company Number: DE-ASTRAZENECA-2010SE57839

PATIENT
  Age: 54 Year
  Sex: Female
  Weight: 58 kg

DRUGS (7)
  1. PROPOFOL [Suspect]
     Indication: GENERAL ANAESTHESIA
     Route: 042
  2. PROPOFOL [Suspect]
     Route: 042
  3. PROPOFOL [Suspect]
     Route: 042
  4. REMIFENTANIL [Suspect]
     Indication: GENERAL ANAESTHESIA
     Dosage: 1000 MICROGRAM PER HOUR
  5. REMIFENTANIL [Suspect]
     Dosage: BALANCED
  6. DESFLURANE [Concomitant]
     Indication: GENERAL ANAESTHESIA
     Dosage: BALANCED
  7. CLOMIPRAMINE HCL [Concomitant]
     Indication: INSOMNIA

REACTIONS (1)
  - MUSCLE SPASMS [None]
